FAERS Safety Report 6092593-6 (Version None)
Quarter: 2009Q1

REPORT INFORMATION
  Report Type: 
  Country: None (occurrence: None)
  Receive Date: 20090225
  Receipt Date: 20080527
  Transmission Date: 20090719
  Serious: No
  Sender: FDA-Public Use
  Company Number: US-BRISTOL-MYERS SQUIBB COMPANY-14205165

PATIENT
  Age: 27 Year
  Sex: Female
  Weight: 61 kg

DRUGS (3)
  1. KENALOG [Suspect]
     Indication: DRUG HYPERSENSITIVITY
     Dates: start: 20080318
  2. TRINESSA [Concomitant]
  3. ADDERALL 10 [Concomitant]

REACTIONS (1)
  - MUSCLE ATROPHY [None]
